FAERS Safety Report 25299938 (Version 1)
Quarter: 2025Q2

REPORT INFORMATION
  Report Type: Spontaneous
  Country: CA (occurrence: CA)
  Receive Date: 20250512
  Receipt Date: 20250512
  Transmission Date: 20250716
  Serious: Yes (Other)
  Sender: MYLAN
  Company Number: CA-MYLANLABS-2024M1076104

PATIENT
  Sex: Female

DRUGS (112)
  1. GABAPENTIN [Suspect]
     Active Substance: GABAPENTIN
     Indication: Product used for unknown indication
  2. GABAPENTIN [Suspect]
     Active Substance: GABAPENTIN
     Route: 065
  3. GABAPENTIN [Suspect]
     Active Substance: GABAPENTIN
     Route: 065
  4. GABAPENTIN [Suspect]
     Active Substance: GABAPENTIN
  5. ELIDEL [Suspect]
     Active Substance: PIMECROLIMUS
     Indication: Product used for unknown indication
  6. ELIDEL [Suspect]
     Active Substance: PIMECROLIMUS
     Route: 065
  7. ELIDEL [Suspect]
     Active Substance: PIMECROLIMUS
     Route: 065
  8. ELIDEL [Suspect]
     Active Substance: PIMECROLIMUS
  9. MINOCYCLINE [Suspect]
     Active Substance: MINOCYCLINE HYDROCHLORIDE
     Indication: Product used for unknown indication
  10. MINOCYCLINE [Suspect]
     Active Substance: MINOCYCLINE HYDROCHLORIDE
     Route: 065
  11. MINOCYCLINE [Suspect]
     Active Substance: MINOCYCLINE HYDROCHLORIDE
     Route: 065
  12. MINOCYCLINE [Suspect]
     Active Substance: MINOCYCLINE HYDROCHLORIDE
  13. METRONIDAZOLE [Suspect]
     Active Substance: METRONIDAZOLE
     Indication: Product used for unknown indication
  14. METRONIDAZOLE [Suspect]
     Active Substance: METRONIDAZOLE
     Route: 065
  15. METRONIDAZOLE [Suspect]
     Active Substance: METRONIDAZOLE
     Route: 065
  16. METRONIDAZOLE [Suspect]
     Active Substance: METRONIDAZOLE
  17. CLINDAMYCIN [Suspect]
     Active Substance: CLINDAMYCIN
     Indication: Product used for unknown indication
  18. CLINDAMYCIN [Suspect]
     Active Substance: CLINDAMYCIN
     Route: 065
  19. CLINDAMYCIN [Suspect]
     Active Substance: CLINDAMYCIN
     Route: 065
  20. CLINDAMYCIN [Suspect]
     Active Substance: CLINDAMYCIN
  21. CLOBETASOL [Suspect]
     Active Substance: CLOBETASOL
     Indication: Product used for unknown indication
  22. CLOBETASOL [Suspect]
     Active Substance: CLOBETASOL
     Route: 065
  23. CLOBETASOL [Suspect]
     Active Substance: CLOBETASOL
     Route: 065
  24. CLOBETASOL [Suspect]
     Active Substance: CLOBETASOL
  25. CLOTRIMAZOLE [Suspect]
     Active Substance: CLOTRIMAZOLE
     Indication: Product used for unknown indication
  26. CLOTRIMAZOLE [Suspect]
     Active Substance: CLOTRIMAZOLE
     Route: 065
  27. CLOTRIMAZOLE [Suspect]
     Active Substance: CLOTRIMAZOLE
     Route: 065
  28. CLOTRIMAZOLE [Suspect]
     Active Substance: CLOTRIMAZOLE
  29. DAPSONE [Suspect]
     Active Substance: DAPSONE
     Indication: Product used for unknown indication
  30. DAPSONE [Suspect]
     Active Substance: DAPSONE
     Route: 065
  31. DAPSONE [Suspect]
     Active Substance: DAPSONE
     Route: 065
  32. DAPSONE [Suspect]
     Active Substance: DAPSONE
  33. DOXYCYCLINE [Suspect]
     Active Substance: DOXYCYCLINE
     Indication: Product used for unknown indication
  34. DOXYCYCLINE [Suspect]
     Active Substance: DOXYCYCLINE
     Route: 065
  35. DOXYCYCLINE [Suspect]
     Active Substance: DOXYCYCLINE
     Route: 065
  36. DOXYCYCLINE [Suspect]
     Active Substance: DOXYCYCLINE
  37. HYDROCORTISONE VALERATE [Suspect]
     Active Substance: HYDROCORTISONE VALERATE
     Indication: Product used for unknown indication
  38. HYDROCORTISONE VALERATE [Suspect]
     Active Substance: HYDROCORTISONE VALERATE
     Route: 065
  39. HYDROCORTISONE VALERATE [Suspect]
     Active Substance: HYDROCORTISONE VALERATE
     Route: 065
  40. HYDROCORTISONE VALERATE [Suspect]
     Active Substance: HYDROCORTISONE VALERATE
  41. HYDROXYCHLOROQUINE [Suspect]
     Active Substance: HYDROXYCHLOROQUINE
     Indication: Product used for unknown indication
  42. HYDROXYCHLOROQUINE [Suspect]
     Active Substance: HYDROXYCHLOROQUINE
     Route: 065
  43. HYDROXYCHLOROQUINE [Suspect]
     Active Substance: HYDROXYCHLOROQUINE
     Route: 065
  44. HYDROXYCHLOROQUINE [Suspect]
     Active Substance: HYDROXYCHLOROQUINE
  45. KETOTIFEN [Suspect]
     Active Substance: KETOTIFEN
     Indication: Product used for unknown indication
  46. KETOTIFEN [Suspect]
     Active Substance: KETOTIFEN
     Route: 065
  47. KETOTIFEN [Suspect]
     Active Substance: KETOTIFEN
     Route: 065
  48. KETOTIFEN [Suspect]
     Active Substance: KETOTIFEN
  49. METHOTREXATE [Suspect]
     Active Substance: METHOTREXATE
     Indication: Product used for unknown indication
  50. METHOTREXATE [Suspect]
     Active Substance: METHOTREXATE
     Route: 048
  51. METHOTREXATE [Suspect]
     Active Substance: METHOTREXATE
     Route: 048
  52. METHOTREXATE [Suspect]
     Active Substance: METHOTREXATE
  53. PREDNISONE [Suspect]
     Active Substance: PREDNISONE
     Indication: Product used for unknown indication
  54. PREDNISONE [Suspect]
     Active Substance: PREDNISONE
     Route: 048
  55. PREDNISONE [Suspect]
     Active Substance: PREDNISONE
     Route: 048
  56. PREDNISONE [Suspect]
     Active Substance: PREDNISONE
  57. PROTOPIC [Suspect]
     Active Substance: TACROLIMUS
     Indication: Product used for unknown indication
     Route: 061
  58. PROTOPIC [Suspect]
     Active Substance: TACROLIMUS
  59. PROTOPIC [Suspect]
     Active Substance: TACROLIMUS
  60. PROTOPIC [Suspect]
     Active Substance: TACROLIMUS
     Route: 061
  61. PROTOPIC [Suspect]
     Active Substance: TACROLIMUS
     Route: 065
  62. PROTOPIC [Suspect]
     Active Substance: TACROLIMUS
  63. PROTOPIC [Suspect]
     Active Substance: TACROLIMUS
  64. PROTOPIC [Suspect]
     Active Substance: TACROLIMUS
     Route: 065
  65. REMICADE [Suspect]
     Active Substance: INFLIXIMAB
     Indication: Product used for unknown indication
     Route: 042
  66. REMICADE [Suspect]
     Active Substance: INFLIXIMAB
  67. REMICADE [Suspect]
     Active Substance: INFLIXIMAB
  68. REMICADE [Suspect]
     Active Substance: INFLIXIMAB
     Route: 042
  69. REMICADE [Suspect]
     Active Substance: INFLIXIMAB
     Route: 065
  70. REMICADE [Suspect]
     Active Substance: INFLIXIMAB
  71. REMICADE [Suspect]
     Active Substance: INFLIXIMAB
  72. REMICADE [Suspect]
     Active Substance: INFLIXIMAB
     Route: 065
  73. STELARA [Suspect]
     Active Substance: USTEKINUMAB
     Indication: Product used for unknown indication
     Route: 058
  74. STELARA [Suspect]
     Active Substance: USTEKINUMAB
  75. STELARA [Suspect]
     Active Substance: USTEKINUMAB
  76. STELARA [Suspect]
     Active Substance: USTEKINUMAB
     Route: 058
  77. STELARA [Suspect]
     Active Substance: USTEKINUMAB
     Route: 065
  78. STELARA [Suspect]
     Active Substance: USTEKINUMAB
  79. STELARA [Suspect]
     Active Substance: USTEKINUMAB
  80. STELARA [Suspect]
     Active Substance: USTEKINUMAB
     Route: 065
  81. SULFATRIM [Suspect]
     Active Substance: SULFAMETHOXAZOLE\TRIMETHOPRIM
     Indication: Product used for unknown indication
  82. SULFATRIM [Suspect]
     Active Substance: SULFAMETHOXAZOLE\TRIMETHOPRIM
     Route: 065
  83. SULFATRIM [Suspect]
     Active Substance: SULFAMETHOXAZOLE\TRIMETHOPRIM
     Route: 065
  84. SULFATRIM [Suspect]
     Active Substance: SULFAMETHOXAZOLE\TRIMETHOPRIM
  85. TETRACYCLINE [Suspect]
     Active Substance: TETRACYCLINE
     Indication: Product used for unknown indication
  86. TETRACYCLINE [Suspect]
     Active Substance: TETRACYCLINE
     Route: 065
  87. TETRACYCLINE [Suspect]
     Active Substance: TETRACYCLINE
     Route: 065
  88. TETRACYCLINE [Suspect]
     Active Substance: TETRACYCLINE
  89. ADALIMUMAB [Suspect]
     Active Substance: ADALIMUMAB
     Indication: Product used for unknown indication
     Route: 058
  90. ADALIMUMAB [Suspect]
     Active Substance: ADALIMUMAB
  91. ADALIMUMAB [Suspect]
     Active Substance: ADALIMUMAB
  92. ADALIMUMAB [Suspect]
     Active Substance: ADALIMUMAB
     Route: 058
  93. ADALIMUMAB [Suspect]
     Active Substance: ADALIMUMAB
     Route: 065
  94. ADALIMUMAB [Suspect]
     Active Substance: ADALIMUMAB
  95. ADALIMUMAB [Suspect]
     Active Substance: ADALIMUMAB
  96. ADALIMUMAB [Suspect]
     Active Substance: ADALIMUMAB
     Route: 065
  97. AMOXICILLIN\CLAVULANATE POTASSIUM [Suspect]
     Active Substance: AMOXICILLIN\CLAVULANATE POTASSIUM
     Indication: Product used for unknown indication
  98. AMOXICILLIN\CLAVULANATE POTASSIUM [Suspect]
     Active Substance: AMOXICILLIN\CLAVULANATE POTASSIUM
     Route: 065
  99. AMOXICILLIN\CLAVULANATE POTASSIUM [Suspect]
     Active Substance: AMOXICILLIN\CLAVULANATE POTASSIUM
     Route: 065
  100. AMOXICILLIN\CLAVULANATE POTASSIUM [Suspect]
     Active Substance: AMOXICILLIN\CLAVULANATE POTASSIUM
  101. AZATHIOPRINE [Suspect]
     Active Substance: AZATHIOPRINE
     Indication: Product used for unknown indication
  102. AZATHIOPRINE [Suspect]
     Active Substance: AZATHIOPRINE
     Route: 065
  103. AZATHIOPRINE [Suspect]
     Active Substance: AZATHIOPRINE
     Route: 065
  104. AZATHIOPRINE [Suspect]
     Active Substance: AZATHIOPRINE
  105. CEPHALEXIN [Suspect]
     Active Substance: CEPHALEXIN
     Indication: Product used for unknown indication
  106. CEPHALEXIN [Suspect]
     Active Substance: CEPHALEXIN
     Route: 065
  107. CEPHALEXIN [Suspect]
     Active Substance: CEPHALEXIN
     Route: 065
  108. CEPHALEXIN [Suspect]
     Active Substance: CEPHALEXIN
  109. CIPROFLOXACIN [Suspect]
     Active Substance: CIPROFLOXACIN
     Indication: Product used for unknown indication
  110. CIPROFLOXACIN [Suspect]
     Active Substance: CIPROFLOXACIN
     Route: 065
  111. CIPROFLOXACIN [Suspect]
     Active Substance: CIPROFLOXACIN
     Route: 065
  112. CIPROFLOXACIN [Suspect]
     Active Substance: CIPROFLOXACIN

REACTIONS (4)
  - Carpal tunnel syndrome [Unknown]
  - Lymphadenitis [Unknown]
  - Subcutaneous abscess [Unknown]
  - Wound complication [Unknown]
